FAERS Safety Report 23324287 (Version 2)
Quarter: 2024Q1

REPORT INFORMATION
  Report Type: Spontaneous
  Country: US (occurrence: US)
  Receive Date: 20231221
  Receipt Date: 20240105
  Transmission Date: 20240409
  Serious: No
  Sender: FDA-Public Use
  Company Number: US-SA-SAC20231214000517

PATIENT
  Age: 14 Year
  Sex: Male

DRUGS (2)
  1. DUPIXENT [Suspect]
     Active Substance: DUPILUMAB
     Indication: Dermatitis atopic
     Dosage: 600 MG, 1X
     Route: 058
     Dates: start: 20230926, end: 20230926
  2. DUPIXENT [Suspect]
     Active Substance: DUPILUMAB
     Dosage: 300 MG, QOW
     Route: 058
     Dates: start: 2023

REACTIONS (4)
  - Vomiting [Not Recovered/Not Resolved]
  - Ocular hyperaemia [Unknown]
  - Dermatitis atopic [Not Recovered/Not Resolved]
  - Eye irritation [Unknown]

NARRATIVE: CASE EVENT DATE: 20230101
